FAERS Safety Report 7965163-X (Version None)
Quarter: 2011Q4

REPORT INFORMATION
  Report Type: 
  Country: None (occurrence: None)
  Receive Date: 20111208
  Receipt Date: 20111124
  Transmission Date: 20120403
  Serious: Yes (Hospitalization)
  Sender: FDA-Public Use
  Company Number: DE-ROCHE-796814

PATIENT
  Sex: Male
  Weight: 76 kg

DRUGS (4)
  1. IRINOTECAN HCL [Concomitant]
     Indication: COLON CANCER METASTATIC
     Dosage: 2ND CYCLE, LAST ADMINISTRATION PRIOR TO THE EVENT ON 18-JUL-2011
     Route: 042
     Dates: start: 20110428, end: 20110809
  2. FLUOROURACIL [Concomitant]
     Indication: COLON CANCER METASTATIC
     Dosage: 2ND CYCLE, LAST ADMINISTRATION PRIOR TO THE EVENT ON 18-JUL-2011
     Route: 042
     Dates: start: 20110428, end: 20110809
  3. AVASTIN [Suspect]
     Indication: COLON CANCER METASTATIC
     Dosage: 2ND CYCLE, LAST ADMINISTRATION PRIOR TO THE EVENT ON 18-JUL-2011
     Route: 042
     Dates: start: 20110428, end: 20110704
  4. LEUCOVORIN CALCIUM [Concomitant]
     Indication: COLON CANCER METASTATIC
     Dosage: 2ND CYCLE, LAST ADMINISTRATION PRIOR TO THE EVENT ON 18-JUL-2011
     Route: 042
     Dates: start: 20110428, end: 20110809

REACTIONS (5)
  - ARTHRALGIA [None]
  - RENAL FAILURE [None]
  - GROIN PAIN [None]
  - HOSPITALISATION [None]
  - NEOPLASM PROGRESSION [None]
